FAERS Safety Report 24189626 (Version 1)
Quarter: 2024Q3

REPORT INFORMATION
  Report Type: Spontaneous
  Country: LU (occurrence: LU)
  Receive Date: 20240808
  Receipt Date: 20240808
  Transmission Date: 20241017
  Serious: Yes (Other)
  Sender: PFIZER
  Company Number: None

PATIENT
  Age: 59 Year
  Sex: Male
  Weight: 72 kg

DRUGS (5)
  1. IRINOTECAN [Suspect]
     Active Substance: IRINOTECAN
     Indication: Pancreatic carcinoma
     Dosage: DAY 1 OF THE 7TH COURSE OF CHEMOTHERAPY
     Route: 042
     Dates: start: 20240705, end: 20240705
  2. LEUCOVORIN [Concomitant]
     Active Substance: LEUCOVORIN\LEUCOVORIN CALCIUM
     Indication: Pancreatic carcinoma
     Dosage: 480 MG, CYCLIC
     Route: 042
     Dates: start: 20240705, end: 20240705
  3. AKYNZEO (NETUPITANT\PALONOSETRON HYDROCHLORIDE) [Concomitant]
     Active Substance: NETUPITANT\PALONOSETRON HYDROCHLORIDE
     Indication: Chemotherapy side effect prophylaxis
     Dosage: 1 DF, SINGLE
     Route: 048
     Dates: start: 20240705, end: 20240705
  4. ATROPINSULFAT [Concomitant]
     Indication: Chemotherapy side effect prophylaxis
     Dosage: 0.25 MG, SINGLE
     Route: 058
     Dates: start: 20240705
  5. DEXAMETHASONE [Concomitant]
     Active Substance: DEXAMETHASONE
     Indication: Chemotherapy side effect prophylaxis
     Dosage: 4 MG, SINGLE
     Route: 042
     Dates: start: 20240705, end: 20240705

REACTIONS (5)
  - Infusion related reaction [Recovering/Resolving]
  - Dizziness [Recovering/Resolving]
  - Intracranial pressure increased [Recovering/Resolving]
  - Eosinophil count decreased [Unknown]
  - Off label use [Unknown]

NARRATIVE: CASE EVENT DATE: 20240705
